FAERS Safety Report 10362943 (Version 1)
Quarter: 2014Q3

REPORT INFORMATION
  Report Type: Spontaneous
  Country: US (occurrence: US)
  Receive Date: 20140805
  Receipt Date: 20140805
  Transmission Date: 20150326
  Serious: Yes (Other)
  Sender: FDA-Public Use
  Company Number: US-SUN PHARMACEUTICAL INDUSTRIES LTD-2014SUN01745

PATIENT

DRUGS (10)
  1. LEVETIRACETAM EXTENDED-RELEASE [Suspect]
     Active Substance: LEVETIRACETAM
     Dosage: 4500 MG, OD
     Route: 048
  2. LEVETIRACETAM EXTENDED-RELEASE [Suspect]
     Active Substance: LEVETIRACETAM
     Dosage: 4500 MG IN THE MORNING ON THE DAY OF LABOR PLUS AN ADDITIONAL 2500 MG IN EVENING
     Route: 048
  3. LEVETIRACETAM EXTENDED-RELEASE [Suspect]
     Active Substance: LEVETIRACETAM
     Dosage: 2500 MG, BID
     Route: 048
  4. LEVETIRACETAM EXTENDED-RELEASE [Suspect]
     Active Substance: LEVETIRACETAM
     Dosage: 3000 MG, OD
     Route: 048
  5. LEVETIRACETAM EXTENDED-RELEASE [Suspect]
     Active Substance: LEVETIRACETAM
     Dosage: 2500 MG, OD
     Route: 048
  6. LEVETIRACETAM EXTENDED-RELEASE [Suspect]
     Active Substance: LEVETIRACETAM
     Dosage: 3500 MG, OD
     Route: 048
  7. LAMOTRIGINE. [Concomitant]
     Active Substance: LAMOTRIGINE
     Indication: PARTIAL SEIZURES
     Dosage: UNK, BID
  8. MULTIVITAMIN [Concomitant]
     Active Substance: VITAMINS
  9. LEVETIRACETAM EXTENDED-RELEASE [Suspect]
     Active Substance: LEVETIRACETAM
     Dosage: 4000 MG, OD
     Route: 048
  10. LEVETIRACETAM EXTENDED-RELEASE [Suspect]
     Active Substance: LEVETIRACETAM
     Indication: PARTIAL SEIZURES
     Dosage: 2000 MG, OD
     Route: 048

REACTIONS (5)
  - Anticonvulsant drug level below therapeutic [Recovered/Resolved]
  - Exposure during pregnancy [Recovered/Resolved]
  - Convulsion [Recovered/Resolved]
  - Unintended pregnancy [None]
  - Maternal exposure during pregnancy [None]
